FAERS Safety Report 8437575-1 (Version None)
Quarter: 2012Q2

REPORT INFORMATION
  Report Type: 
  Country: None (occurrence: None)
  Receive Date: 20120614
  Receipt Date: 20120409
  Transmission Date: 20120825
  Serious: Yes (Hospitalization)
  Sender: FDA-Public Use
  Company Number: US-AMGEN-USASP2012022923

PATIENT
  Age: 68 Year
  Sex: Female

DRUGS (1)
  1. PROLIA [Suspect]
     Indication: OSTEOPOROSIS
     Dosage: 60 MG, Q6MO
     Route: 058
     Dates: start: 20101013

REACTIONS (9)
  - SWELLING [None]
  - CHILLS [None]
  - TENDERNESS [None]
  - PYREXIA [None]
  - PAIN [None]
  - CONFUSIONAL STATE [None]
  - HYPOCALCAEMIA [None]
  - PRODUCTIVE COUGH [None]
  - DYSKINESIA [None]
